FAERS Safety Report 23427326 (Version 9)
Quarter: 2024Q4

REPORT INFORMATION
  Report Type: Spontaneous
  Country: JP (occurrence: JP)
  Receive Date: 20240122
  Receipt Date: 20241202
  Transmission Date: 20250114
  Serious: Yes (Other)
  Sender: MERCK
  Company Number: JP-MSD-M2023-51913

PATIENT
  Age: 4 Decade
  Sex: Female

DRUGS (7)
  1. KEYTRUDA [Suspect]
     Active Substance: PEMBROLIZUMAB
     Indication: Triple negative breast cancer
     Dosage: 200 MILLIGRAM, Q3W
     Route: 041
     Dates: start: 20231110
  2. KEYTRUDA [Suspect]
     Active Substance: PEMBROLIZUMAB
     Dosage: UNK
     Route: 041
     Dates: start: 2024
  3. PACLITAXEL [Suspect]
     Active Substance: PACLITAXEL
     Dosage: 80 MILLIGRAM/SQ. METER, QW
     Route: 041
     Dates: start: 20231110, end: 20240105
  4. PACLITAXEL [Suspect]
     Active Substance: PACLITAXEL
     Dosage: 80 MILLIGRAM/SQ. METER, QW
     Route: 041
     Dates: start: 20240109
  5. CARBOPLATIN [Suspect]
     Active Substance: CARBOPLATIN
     Dosage: AUC1.5, QW
     Route: 041
     Dates: start: 20231110, end: 20240105
  6. CARBOPLATIN [Suspect]
     Active Substance: CARBOPLATIN
     Dosage: AUC1.5, QW
     Route: 041
     Dates: start: 20240109
  7. VALPROATE SODIUM [Suspect]
     Active Substance: VALPROATE SODIUM
     Indication: Headache
     Dosage: UNK
     Route: 065
     Dates: end: 2024

REACTIONS (11)
  - Immune-mediated hypothyroidism [Recovering/Resolving]
  - Neuropathy peripheral [Not Recovered/Not Resolved]
  - Thyroid hormones increased [Recovered/Resolved]
  - Menopausal symptoms [Unknown]
  - Tri-iodothyronine free increased [Recovered/Resolved]
  - Anosmia [Recovering/Resolving]
  - Pyrexia [Recovered/Resolved]
  - Pyrexia [Unknown]
  - Arthralgia [Recovering/Resolving]
  - Physical deconditioning [Not Recovered/Not Resolved]
  - Hepatic function abnormal [Recovered/Resolved]

NARRATIVE: CASE EVENT DATE: 20231117
